FAERS Safety Report 16569748 (Version 2)
Quarter: 2019Q3

REPORT INFORMATION
  Report Type: Spontaneous
  Country: US (occurrence: US)
  Receive Date: 20190715
  Receipt Date: 20190801
  Transmission Date: 20191004
  Serious: Yes (Other)
  Sender: FDA-Public Use
  Company Number: US-TORRENT-00008995

PATIENT
  Age: 53 Year
  Sex: Male

DRUGS (1)
  1. CARBAMAZEPINE. [Suspect]
     Active Substance: CARBAMAZEPINE
     Indication: BIPOLAR DISORDER
     Dosage: UNKNOWN

REACTIONS (4)
  - Off label use [Unknown]
  - Debridement [Unknown]
  - External fixation of fracture [Unknown]
  - Pathological fracture [Recovered/Resolved]
